FAERS Safety Report 5323603-9 (Version None)
Quarter: 2007Q2

REPORT INFORMATION
  Report Type: 
  Country: None (occurrence: None)
  Receive Date: 20070514
  Receipt Date: 20070502
  Transmission Date: 20071010
  Serious: Yes (Hospitalization)
  Sender: FDA-Public Use
  Company Number: US-AMGEN-STX214898

PATIENT
  Age: 18 Year
  Sex: Female
  Weight: 66.7 kg

DRUGS (2)
  1. ENBREL [Suspect]
     Indication: PSORIASIS
     Dates: start: 20070101, end: 20070313
  2. TRIAMCINOLONE ACETONIDE [Concomitant]
     Indication: PSORIASIS
     Route: 061

REACTIONS (2)
  - BRIEF PSYCHOTIC DISORDER WITHOUT MARKED STRESSORS [None]
  - SUICIDAL IDEATION [None]
